FAERS Safety Report 14834208 (Version 1)
Quarter: 2018Q2

REPORT INFORMATION
  Report Type: Spontaneous
  Country: US (occurrence: US)
  Receive Date: 20180501
  Receipt Date: 20180501
  Transmission Date: 20180711
  Serious: Yes (Hospitalization)
  Sender: FDA-Public Use
  Company Number: US-AKORN PHARMACEUTICALS-2018AKN00465

PATIENT
  Sex: Female
  Weight: 47.62 kg

DRUGS (1)
  1. MYORISAN [Suspect]
     Active Substance: ISOTRETINOIN
     Indication: ACNE CYSTIC
     Dosage: UNK
     Dates: start: 20171106, end: 20180308

REACTIONS (2)
  - Henoch-Schonlein purpura [Unknown]
  - Nephritis [Unknown]

NARRATIVE: CASE EVENT DATE: 2018
